FAERS Safety Report 9029842 (Version 1)
Quarter: 2013Q1

REPORT INFORMATION
  Report Type: Spontaneous
  Country: US (occurrence: US)
  Receive Date: 20130124
  Receipt Date: 20130124
  Transmission Date: 20140127
  Serious: Yes (Other)
  Sender: FDA-Public Use
  Company Number: CHPA2013US001540

PATIENT
  Age: 56 Year
  Sex: Female

DRUGS (2)
  1. EXCEDRIN TENSION HEADACHE [Suspect]
     Indication: MIGRAINE
     Dosage: UNK, UNK
     Route: 048
  2. TRAMADOL [Concomitant]
     Indication: ARTHRITIS

REACTIONS (11)
  - Diabetes mellitus [Unknown]
  - Thyroid disorder [Unknown]
  - Rheumatic fever [Unknown]
  - Rectal haemorrhage [Unknown]
  - Diverticulitis [Unknown]
  - Hypertension [Unknown]
  - Sleep apnoea syndrome [Unknown]
  - Gastrooesophageal reflux disease [Unknown]
  - Migraine [Unknown]
  - Off label use [Unknown]
  - Expired drug administered [Unknown]
